FAERS Safety Report 7507077-5 (Version None)
Quarter: 2011Q2

REPORT INFORMATION
  Report Type: 
  Country: None (occurrence: None)
  Receive Date: 20110526
  Receipt Date: 20100920
  Transmission Date: 20111010
  Serious: No
  Sender: FDA-Public Use
  Company Number: US-MYLANLABS-2010S1016299

PATIENT
  Age: 23 Year
  Sex: Male
  Weight: 104.33 kg

DRUGS (2)
  1. VERAPAMIL HYDROCHLORIDE [Suspect]
     Route: 048
     Dates: start: 20090701
  2. VERAPAMIL HYDROCHLORIDE [Suspect]
     Indication: HYPERTENSION
     Route: 048
     Dates: start: 20090701

REACTIONS (6)
  - ABDOMINAL DISCOMFORT [None]
  - DYSGEUSIA [None]
  - NAUSEA [None]
  - DYSPEPSIA [None]
  - PAROSMIA [None]
  - REGURGITATION [None]
